FAERS Safety Report 6561362-2 (Version None)
Quarter: 2010Q1

REPORT INFORMATION
  Report Type: 
  Country: None (occurrence: None)
  Receive Date: 20100130
  Receipt Date: 20091015
  Transmission Date: 20100710
  Serious: No
  Sender: FDA-Public Use
  Company Number: US-ABBOTT-09P-163-0603598-00

PATIENT
  Age: 45 Year
  Sex: Male

DRUGS (2)
  1. HUMIRA [Suspect]
     Indication: DRUG USE FOR UNKNOWN INDICATION
     Dosage: NOT REPORTED
     Dates: start: 20080101
  2. UNKNOWN STEROIDS [Concomitant]
     Indication: DRUG USE FOR UNKNOWN INDICATION

REACTIONS (2)
  - PARAESTHESIA [None]
  - VISION BLURRED [None]
